FAERS Safety Report 21606547 (Version 7)
Quarter: 2023Q1

REPORT INFORMATION
  Report Type: Report from Study
  Country: GB (occurrence: GB)
  Receive Date: 20221117
  Receipt Date: 20230216
  Transmission Date: 20230417
  Serious: Yes (Hospitalization, Other)
  Sender: FDA-Public Use
  Company Number: GB-002147023-NVSC2022GB253803

PATIENT
  Age: 31 Year
  Sex: Female

DRUGS (3)
  1. KESIMPTA [Suspect]
     Active Substance: OFATUMUMAB
     Indication: Relapsing-remitting multiple sclerosis
     Dosage: 20 MG, QW (CURRENTLY TAKING THE TITRATION DOSE - HAD WEEK 0 AND WEEK 1) (DELAYED BY AT LEAST TWO DAY
     Route: 058
     Dates: start: 20221031
  2. KESIMPTA [Suspect]
     Active Substance: OFATUMUMAB
     Indication: Multiple sclerosis
     Dosage: 20 MG, OTHER
     Route: 058
     Dates: start: 20221102
  3. KESIMPTA [Suspect]
     Active Substance: OFATUMUMAB
     Dosage: 20 MG, QMO
     Route: 058

REACTIONS (16)
  - Infection [Unknown]
  - Malaise [Unknown]
  - Hypotension [Unknown]
  - Pancreatitis acute [Recovered/Resolved]
  - Blindness [Recovering/Resolving]
  - Decreased appetite [Recovering/Resolving]
  - Feeling abnormal [Unknown]
  - Sleep terror [Recovering/Resolving]
  - Insomnia [Recovering/Resolving]
  - Illness [Recovering/Resolving]
  - Pain in extremity [Unknown]
  - Hypoaesthesia [Unknown]
  - Diarrhoea [Recovering/Resolving]
  - Headache [Recovering/Resolving]
  - Vomiting [Recovering/Resolving]
  - Fatigue [Recovering/Resolving]

NARRATIVE: CASE EVENT DATE: 20221031
